FAERS Safety Report 14482079 (Version 1)
Quarter: 2018Q1

REPORT INFORMATION
  Report Type: Spontaneous
  Country: US (occurrence: US)
  Receive Date: 20180202
  Receipt Date: 20180202
  Transmission Date: 20180509
  Serious: No
  Sender: FDA-Public Use
  Company Number: US-009507513-1801USA008870

PATIENT
  Sex: Female

DRUGS (5)
  1. NORTRIPTYLINE [Concomitant]
     Active Substance: NORTRIPTYLINE
  2. BELSOMRA [Suspect]
     Active Substance: SUVOREXANT
     Indication: INSOMNIA
     Dosage: TOOK ONE 10 MG TABLET BEFORE BED
     Route: 048
     Dates: start: 20180119, end: 20180119
  3. METOPROLOL. [Concomitant]
     Active Substance: METOPROLOL
  4. FAMOTIDINE. [Concomitant]
     Active Substance: FAMOTIDINE
  5. BENADRYL [Suspect]
     Active Substance: DIPHENHYDRAMINE HYDROCHLORIDE

REACTIONS (10)
  - Dyspnoea [Recovering/Resolving]
  - Erythema [Recovering/Resolving]
  - Violence-related symptom [Recovering/Resolving]
  - Agitation [Recovering/Resolving]
  - Anger [Recovering/Resolving]
  - Psychomotor hyperactivity [Recovering/Resolving]
  - Mouth breathing [Recovering/Resolving]
  - Feeling hot [Recovering/Resolving]
  - Pain [Recovering/Resolving]
  - Panic attack [Recovering/Resolving]

NARRATIVE: CASE EVENT DATE: 20180119
